FAERS Safety Report 8887151 (Version 1)
Quarter: 2012Q4

REPORT INFORMATION
  Report Type: Report from Study
  Country: AU (occurrence: AU)
  Receive Date: 20121105
  Receipt Date: 20121105
  Transmission Date: 20130627
  Serious: Yes (Hospitalization)
  Sender: FDA-Public Use
  Company Number: AU-ROCHE-1151509

PATIENT
  Age: 87 Year
  Sex: Female

DRUGS (5)
  1. RANIBIZUMAB [Suspect]
     Indication: AGE-RELATED MACULAR DEGENERATION
     Dosage: Date of last dose prior to SAE: 24/Apr/2012
     Route: 050
     Dates: start: 20111115
  2. RANIBIZUMAB [Suspect]
     Route: 050
     Dates: start: 20120424
  3. AVAPRO [Concomitant]
     Route: 065
     Dates: start: 2003, end: 20120509
  4. CARTIA (AUSTRALIA) [Concomitant]
     Route: 065
     Dates: start: 2004, end: 20120509
  5. ZOCOR [Concomitant]
     Route: 065
     Dates: start: 2005, end: 20120509

REACTIONS (4)
  - Fall [Unknown]
  - Coronary artery disease [Unknown]
  - Myocardial infarction [Recovered/Resolved]
  - Acute myocardial infarction [Recovered/Resolved]
